FAERS Safety Report 8365406-7 (Version None)
Quarter: 2012Q2

REPORT INFORMATION
  Report Type: 
  Country: None (occurrence: None)
  Receive Date: 20120516
  Receipt Date: 20120510
  Transmission Date: 20120825
  Serious: Yes (Hospitalization)
  Sender: FDA-Public Use
  Company Number: FR-B.I. PHARMACEUTICALS,INC./RIDGEFIELD-2011-FF-00804FF

PATIENT
  Sex: Male
  Weight: 53 kg

DRUGS (1)
  1. PRADAXA [Suspect]
     Indication: ATRIAL FIBRILLATION
     Dosage: 220 MG
     Route: 048
     Dates: start: 20101201, end: 20110801

REACTIONS (3)
  - HAEMATOMA [None]
  - ISCHAEMIC STROKE [None]
  - DRUG INEFFECTIVE [None]
